FAERS Safety Report 11803450 (Version 2)
Quarter: 2016Q1

REPORT INFORMATION
  Report Type: Spontaneous
  Country: SE (occurrence: SE)
  Receive Date: 20151204
  Receipt Date: 20160120
  Transmission Date: 20160525
  Serious: Yes (Other)
  Sender: FDA-Public Use
  Company Number: SE-PFIZER INC-2015417775

PATIENT
  Age: 73 Year
  Sex: Male

DRUGS (7)
  1. ATORVASTATIN TEVA [Suspect]
     Active Substance: ATORVASTATIN
     Dosage: 40 MG, UNK
     Dates: start: 20151217
  2. ATENOLOL. [Concomitant]
     Active Substance: ATENOLOL
  3. ATORVASTATIN TEVA [Suspect]
     Active Substance: ATORVASTATIN
     Dosage: 40 MG, UNK
     Dates: start: 20151103, end: 20151117
  4. AMLODIPIN /00972401/ [Concomitant]
     Active Substance: AMLODIPINE BESYLATE
  5. ENALAPRIL [Concomitant]
     Active Substance: ENALAPRIL
  6. CLOPIDOGREL [Concomitant]
     Active Substance: CLOPIDOGREL BISULFATE
  7. ATORVASTATIN TEVA [Suspect]
     Active Substance: ATORVASTATIN
     Indication: CARDIOVASCULAR DISORDER
     Dosage: 80 MG, UNK
     Route: 048
     Dates: start: 20151003, end: 20151102

REACTIONS (4)
  - Muscle spasms [Recovering/Resolving]
  - Myalgia [Recovering/Resolving]
  - Arthralgia [Recovering/Resolving]
  - Polymyalgia rheumatica [Recovering/Resolving]

NARRATIVE: CASE EVENT DATE: 20151104
